FAERS Safety Report 8619006-1 (Version None)
Quarter: 2012Q3

REPORT INFORMATION
  Report Type: 
  Country: None (occurrence: None)
  Receive Date: 20120824
  Receipt Date: 20120820
  Transmission Date: 20120928
  Serious: Yes (Hospitalization)
  Sender: FDA-Public Use
  Company Number: PHHY2012CA071272

PATIENT
  Sex: Female

DRUGS (10)
  1. VENTOLIN [Concomitant]
  2. SYMBICORT [Concomitant]
  3. SYNTHROID [Concomitant]
  4. ATIVAN [Concomitant]
  5. LASIX [Concomitant]
  6. ZOLEDRONOC ACID [Suspect]
     Indication: OSTEOPOROSIS
     Dosage: UNK
     Route: 042
     Dates: start: 20110825
  7. PREMARIN [Concomitant]
  8. CALCIUM [Concomitant]
  9. SPIRIVA [Concomitant]
  10. NEXIUM [Concomitant]

REACTIONS (3)
  - CHRONIC OBSTRUCTIVE PULMONARY DISEASE [None]
  - BRONCHITIS [None]
  - PNEUMONIA [None]
